FAERS Safety Report 20313366 (Version 2)
Quarter: 2022Q2

REPORT INFORMATION
  Report Type: Report from Study
  Country: US (occurrence: US)
  Receive Date: 20220110
  Receipt Date: 20220609
  Transmission Date: 20220721
  Serious: Yes (Other)
  Sender: FDA-Public Use
  Company Number: US-BAUSCH-BL-2021-017946

PATIENT
  Age: 79 Year
  Sex: Male
  Weight: 100.84 kg

DRUGS (22)
  1. XIFAXAN [Suspect]
     Active Substance: RIFAXIMIN
     Indication: Hepatic encephalopathy
     Dosage: RAN OUT OF MEDICATION A COUPLE WEEKS AGO
     Route: 048
     Dates: start: 2015, end: 20211211
  2. XIFAXAN [Suspect]
     Active Substance: RIFAXIMIN
     Indication: Hepatic cirrhosis
     Route: 048
  3. MINERALS\VITAMINS [Concomitant]
     Active Substance: MINERALS\VITAMINS
     Indication: Product used for unknown indication
     Dates: start: 20200925
  4. GABAPENTIN [Concomitant]
     Active Substance: GABAPENTIN
     Indication: Diabetic neuropathy
     Dosage: 1 CAPSULE BY MOUTH EVERY MORNING,1 CAPSULE EVERY EVENING AND 2 AT NIGHT
     Route: 048
     Dates: start: 20170221
  5. HYDROXYCHLOROQUINE SULFATE [Concomitant]
     Active Substance: HYDROXYCHLOROQUINE SULFATE
     Indication: Product used for unknown indication
     Route: 048
     Dates: start: 20210408
  6. METFORMIN HYDROCHLORIDE [Concomitant]
     Active Substance: METFORMIN HYDROCHLORIDE
     Indication: Diabetes mellitus
     Dosage: WITH MEALS. LAST RX ORDERED 23/DEC/2020.
     Route: 048
     Dates: start: 20201022
  7. NYSTATIN [Concomitant]
     Active Substance: NYSTATIN
     Indication: Dermatitis
     Dosage: 100000 UNIT/GM, APPLY SPARINGLY TO AFFECTED AREA(3 TIMES A DAY) EXTERNAL POWDER
     Dates: end: 20201022
  8. NYSTATIN [Concomitant]
     Active Substance: NYSTATIN
     Dosage: 100000 UNIT/GM, APPLY SPARINGLY TO AFFECTED AREA(3 TIMES A DAY) EXTERNAL POWDER
     Dates: start: 20201022
  9. OMEPRAZOLE [Concomitant]
     Active Substance: OMEPRAZOLE
     Indication: Product used for unknown indication
     Dosage: CAPSULE DELAYED RELEASE.
     Route: 048
     Dates: start: 20180116
  10. OXYCODONE AND ACETAMINOPHEN [Concomitant]
     Active Substance: ACETAMINOPHEN\OXYCODONE HYDROCHLORIDE
     Indication: Intervertebral disc protrusion
     Dosage: 10-325 MG, 1 TAB EVERY 4-6 HOURS AS NEEDED
     Route: 048
     Dates: start: 20120424, end: 20210331
  11. OXYCODONE AND ACETAMINOPHEN [Concomitant]
     Active Substance: ACETAMINOPHEN\OXYCODONE HYDROCHLORIDE
     Indication: Lumbar radiculopathy
  12. VITAMIN D3 [Concomitant]
     Active Substance: CHOLECALCIFEROL
     Indication: Product used for unknown indication
     Dosage: 350MCG(2000 UT)
     Route: 048
     Dates: start: 20200925
  13. NOVOLOG [Concomitant]
     Active Substance: INSULIN ASPART
     Indication: Product used for unknown indication
     Dosage: 100 UNIT/ML, SUBCUTANEOUS SOLUTION PEN INJECTOR,20 UNITS 2 TIMES PER DAY
     Route: 058
     Dates: start: 20160216, end: 20200709
  14. LACTULOSE [Concomitant]
     Active Substance: LACTULOSE
     Indication: Hepatic encephalopathy
     Dosage: 10 GM/15 ML.
     Route: 048
     Dates: start: 20170221
  15. HUMIRA [Concomitant]
     Active Substance: ADALIMUMAB
     Indication: Sleep apnoea syndrome
     Dosage: 10 MG/ 0.1 ML, PREFILLED SYRINGE KIT.
     Route: 058
     Dates: start: 20210726
  16. INFLUENZA VIRUS VACCINE [Concomitant]
     Active Substance: INFLUENZA VIRUS VACCINE
     Indication: Immunisation
     Dosage: SERIES 1 (16/SEP/2011) TO SERIES 15 25/SEP/2020.
     Dates: start: 20110916, end: 20200925
  17. MODERNA COVID-19 VACCINE [Concomitant]
     Active Substance: ELASOMERAN
     Indication: Immunisation
     Dosage: INTRAMUSCULAR SUSPENSION. SERIES 1 (26/JAN/2021), SERIES 2 ON 23/FEB/2021.
     Route: 030
     Dates: start: 20210126, end: 20210223
  18. PNEUMOCOCCAL VACCINE POLYVALENT [Concomitant]
     Active Substance: PNEUMOCOCCAL VACCINE POLYVALENT
     Indication: Immunisation
     Dosage: PCV- SERIES 1 (08/OCT/2015) TO SERIES 2 ON13/JAN/2017.
     Dates: start: 20151008, end: 20170113
  19. PNEUMOCOCCAL VACCINE POLYVALENT [Concomitant]
     Active Substance: PNEUMOCOCCAL VACCINE POLYVALENT
     Indication: Immunisation
     Dosage: PPSV- SERIES 1
     Dates: start: 20080923
  20. TETANUS TOXOID, REDUCED DIPHTHERIA TOXOID AND ACELLULAR PERTUSSIS VACC [Concomitant]
     Active Substance: TETANUS TOXOID, REDUCED DIPHTHERIA TOXOID AND ACELLULAR PERTUSSIS VACCINE ADSORBED, TDAP
     Indication: Immunisation
     Dosage: PPSV- SERIES 1 (05/JUL/2016)
     Dates: start: 20160705
  21. ZOSTER [Concomitant]
     Indication: Immunisation
     Dosage: PPSV- SERIES 1 (03/SEP/2018) SERIES 2 (08/MAY/2019)
     Dates: start: 20180903, end: 20190508
  22. VARICELLA-ZOSTER VIRUS STRAIN OKA/MERCK LIVE ANTIGEN [Concomitant]
     Active Substance: VARICELLA-ZOSTER VIRUS STRAIN OKA/MERCK LIVE ANTIGEN
     Indication: Immunisation
     Dosage: ZOSTER VACCINE, LIVE- SERIES 1 (12/FEB/2015)
     Dates: start: 20150212

REACTIONS (14)
  - Diabetes mellitus [Unknown]
  - Abdominal hernia [Unknown]
  - Nightmare [Unknown]
  - Lethargy [Unknown]
  - Ammonia increased [Not Recovered/Not Resolved]
  - Confusional state [Not Recovered/Not Resolved]
  - Amnesia [Unknown]
  - Fatigue [Unknown]
  - Asthenia [Unknown]
  - Abdominal pain upper [Recovered/Resolved]
  - Abdominal pain lower [Recovered/Resolved]
  - Somnolence [Unknown]
  - Nausea [Recovered/Resolved]
  - Therapy interrupted [Unknown]

NARRATIVE: CASE EVENT DATE: 20210101
